FAERS Safety Report 4639107-2 (Version None)
Quarter: 2005Q2

REPORT INFORMATION
  Report Type: 
  Country: None (occurrence: None)
  Receive Date: 20050418
  Receipt Date: 20050412
  Transmission Date: 20051028
  Serious: Yes (Life-Threatening, Disabling)
  Sender: FDA-Public Use
  Company Number: 2005AL001385

PATIENT
  Age: 57 Year
  Sex: Male

DRUGS (1)
  1. SERAX [Suspect]
     Indication: ALCOHOL WITHDRAWAL SYNDROME
     Dates: start: 20040514

REACTIONS (4)
  - ACUTE RESPIRATORY DISTRESS SYNDROME [None]
  - ALCOHOLISM [None]
  - COMA [None]
  - FALL [None]
